FAERS Safety Report 11253321 (Version 1)
Quarter: 2015Q3

REPORT INFORMATION
  Report Type: Spontaneous
  Country: US (occurrence: US)
  Receive Date: 20150709
  Receipt Date: 20150709
  Transmission Date: 20151125
  Serious: No
  Sender: FDA-Public Use
  Company Number: US-TEVA-554464USA

PATIENT
  Sex: Female
  Weight: 88.53 kg

DRUGS (2)
  1. VENLAFAXINE [Suspect]
     Active Substance: VENLAFAXINE HYDROCHLORIDE
     Indication: DEPRESSION
     Dosage: ONCE A DAY TO TWICE A DAY
     Route: 048
     Dates: start: 2013
  2. EXCEDRIN [Concomitant]
     Active Substance: ACETAMINOPHEN\ASPIRIN\CAFFEINE
     Indication: HEADACHE

REACTIONS (6)
  - Malaise [Unknown]
  - Drug ineffective [Unknown]
  - Nausea [Unknown]
  - Insomnia [Unknown]
  - Product substitution issue [Unknown]
  - Headache [Unknown]
